FAERS Safety Report 9885097 (Version 1)
Quarter: 2014Q1

REPORT INFORMATION
  Report Type: Spontaneous
  Country: US (occurrence: US)
  Receive Date: 20140210
  Receipt Date: 20140210
  Transmission Date: 20141002
  Serious: Yes (Other)
  Sender: FDA-Public Use
  Company Number: US-OTSUKA-US-2013-11014

PATIENT
  Sex: 0

DRUGS (12)
  1. BUSULFEX [Suspect]
     Indication: STEM CELL TRANSPLANT
     Dosage: 3.2 MG/KG, UNK
     Route: 042
  2. FLUDARABINE [Suspect]
     Indication: STEM CELL TRANSPLANT
     Dosage: 50 MG/M2, UNKNOWN
     Route: 042
  3. PHENYTOIN [Concomitant]
     Indication: PROPHYLAXIS
  4. METHOTREXATE [Concomitant]
     Indication: PROPHYLAXIS
     Dosage: 15 MG/M2, UNKNOWN
     Route: 042
  5. METHOTREXATE [Concomitant]
     Dosage: 10 MG/M2, UNK
     Route: 042
  6. CYCLOSPORIN A [Concomitant]
     Indication: PROPHYLAXIS
     Dosage: 2.5 MG/KG, BID
     Route: 042
  7. CYCLOSPORIN A [Concomitant]
     Dosage: 6.25 MG/KG, BID
     Route: 048
  8. FOLINIC ACID [Concomitant]
     Indication: PROPHYLAXIS
     Dosage: 5 MG MILLIGRAM(S), QID
     Route: 065
  9. THYMOGLOBULINE [Concomitant]
     Indication: PROPHYLAXIS
     Dosage: 4.5 MG/KG, UNKNOWN
     Route: 065
  10. MOFETILMIKOFENOLAT [Concomitant]
     Indication: PROPHYLAXIS
     Dosage: UNK, UNKNOWN
     Route: 065
  11. MONOCLONAL ANTIBODIES [Concomitant]
     Indication: PROPHYLAXIS
     Dosage: UNK, UNKNOWN
     Route: 065
  12. CALCINEURIN INHIBITORS [Concomitant]
     Indication: PROPHYLAXIS
     Dosage: UNK, UNKNOWN
     Route: 065

REACTIONS (5)
  - Microangiopathic haemolytic anaemia [Unknown]
  - Cystitis haemorrhagic [Unknown]
  - Convulsion [Unknown]
  - Stomatitis [Unknown]
  - Off label use [Unknown]
